FAERS Safety Report 8614081-2 (Version None)
Quarter: 2012Q3

REPORT INFORMATION
  Report Type: 
  Country: None (occurrence: None)
  Receive Date: 20120823
  Receipt Date: 20120810
  Transmission Date: 20120928
  Serious: Yes (Hospitalization, Disabling, Other)
  Sender: FDA-Public Use
  Company Number: US-009507513-1203USA03292

PATIENT

DRUGS (2)
  1. ALENDRONATE SODIUM [Suspect]
     Indication: OSTEOPENIA
     Dosage: 70 MG, QW
     Dates: start: 20090329
  2. FOSAMAX [Suspect]
     Indication: OSTEOPENIA
     Dosage: 70 MG, QW
     Route: 048
     Dates: end: 20090101

REACTIONS (22)
  - FEMUR FRACTURE [None]
  - STRESS FRACTURE [None]
  - TYMPANIC MEMBRANE PERFORATION [None]
  - ANAEMIA [None]
  - OSTEOPOROSIS [None]
  - CARDIOMEGALY [None]
  - HYPERTENSION [None]
  - SEDATION [None]
  - BLOOD PRESSURE INCREASED [None]
  - BRONCHIECTASIS [None]
  - PLEURAL EFFUSION [None]
  - HILAR LYMPHADENOPATHY [None]
  - OTITIS MEDIA [None]
  - LOW TURNOVER OSTEOPATHY [None]
  - BLOOD CHOLESTEROL INCREASED [None]
  - SCOLIOSIS [None]
  - ARTHRALGIA [None]
  - HIP FRACTURE [None]
  - PNEUMONIA [None]
  - VASCULAR INJURY [None]
  - AORTIC ARTERIOSCLEROSIS [None]
  - ARTERIOSCLEROSIS CORONARY ARTERY [None]
